FAERS Safety Report 4763305-0 (Version None)
Quarter: 2005Q3

REPORT INFORMATION
  Report Type: 
  Country: None (occurrence: None)
  Receive Date: 20050826
  Receipt Date: 20041228
  Transmission Date: 20060218
  Serious: Yes (Other)
  Sender: FDA-Public Use
  Company Number: USA-2003-0012146

PATIENT
  Age: 43 Year
  Sex: Male
  Weight: 81.6 kg

DRUGS (1)
  1. OXYCONTIN [Suspect]
     Indication: PAIN
     Dosage: 80 MG, TID

REACTIONS (18)
  - ABDOMINAL PAIN UPPER [None]
  - ANXIETY [None]
  - BACK PAIN [None]
  - CONSTIPATION [None]
  - DECREASED APPETITE [None]
  - DEPRESSION [None]
  - DIARRHOEA [None]
  - DRUG DEPENDENCE [None]
  - DRUG WITHDRAWAL SYNDROME [None]
  - FLUSHING [None]
  - HEADACHE [None]
  - HEART RATE INCREASED [None]
  - HYPERHIDROSIS [None]
  - NAUSEA [None]
  - NOCTURIA [None]
  - PAIN [None]
  - STOOL ANALYSIS ABNORMAL [None]
  - WEIGHT FLUCTUATION [None]
